FAERS Safety Report 22624770 (Version 1)
Quarter: 2023Q2

REPORT INFORMATION
  Report Type: Spontaneous
  Country: US (occurrence: None)
  Receive Date: 20230620
  Receipt Date: 20230620
  Transmission Date: 20230722
  Serious: Yes (Disabling)
  Sender: FDA-Public Use
  Company Number: None

PATIENT
  Age: 66 Year
  Sex: Male
  Weight: 130.5 kg

DRUGS (15)
  1. GABAPENTIN [Suspect]
     Active Substance: GABAPENTIN
     Indication: Neuropathy peripheral
     Dates: start: 20180101, end: 20230521
  2. ALLOPURINOL [Concomitant]
  3. OMEPRAZOLE [Concomitant]
  4. PRAVASTATIN [Concomitant]
  5. METOPROLOL [Concomitant]
  6. TERAZOSIN [Concomitant]
  7. Spironolacyone-HCTZ [Concomitant]
  8. ESCITALOPRAM [Concomitant]
  9. ELIQUIS [Concomitant]
     Active Substance: APIXABAN
  10. DITROPAN XL [Concomitant]
  11. ENTRESTO [Concomitant]
     Active Substance: SACUBITRIL\VALSARTAN
  12. FLECAINIDE ACETATE [Concomitant]
     Active Substance: FLECAINIDE ACETATE
  13. VITAMIN D3 [Concomitant]
     Active Substance: CHOLECALCIFEROL
  14. DIGOXIN [Concomitant]
  15. TYLENOL [Concomitant]

REACTIONS (5)
  - Product use issue [None]
  - Withdrawal syndrome [None]
  - Headache [None]
  - Anxiety [None]
  - Sleep disorder [None]

NARRATIVE: CASE EVENT DATE: 20230620
